FAERS Safety Report 9897462 (Version 1)
Quarter: 2014Q1

REPORT INFORMATION
  Report Type: Spontaneous
  Country: US (occurrence: US)
  Receive Date: 20140214
  Receipt Date: 20140214
  Transmission Date: 20141002
  Serious: Yes (Other)
  Sender: FDA-Public Use
  Company Number: US-JNJFOC-20140203641

PATIENT
  Age: 45 Year
  Sex: Female

DRUGS (2)
  1. DOXORUBICIN [Suspect]
     Indication: INTRADUCTAL PROLIFERATIVE BREAST LESION
     Route: 042
  2. CYCLOPHOSPHAMIDE [Suspect]
     Indication: INTRADUCTAL PROLIFERATIVE BREAST LESION
     Route: 065

REACTIONS (2)
  - Leukaemia cutis [Recovering/Resolving]
  - Myeloid leukaemia [Unknown]
